FAERS Safety Report 24134027 (Version 1)
Quarter: 2024Q3

REPORT INFORMATION
  Report Type: Report from Study
  Country: US (occurrence: US)
  Receive Date: 20240724
  Receipt Date: 20240724
  Transmission Date: 20241016
  Serious: Yes (Other)
  Sender: ABBVIE
  Company Number: US-ABBVIE-5848588

PATIENT
  Sex: Male

DRUGS (1)
  1. HUMIRA [Suspect]
     Active Substance: ADALIMUMAB
     Indication: Rheumatoid arthritis
     Dosage: STRENGTH: 40MG/0.4 ML CITRATE FREE
     Route: 058
     Dates: start: 20231212

REACTIONS (2)
  - Ocular discomfort [Recovering/Resolving]
  - Back pain [Unknown]
